FAERS Safety Report 10194074 (Version 1)
Quarter: 2014Q2

REPORT INFORMATION
  Report Type: Spontaneous
  Country: US (occurrence: US)
  Receive Date: 20140524
  Receipt Date: 20140524
  Transmission Date: 20141212
  Serious: No
  Sender: FDA-Public Use
  Company Number: US-SANOFI-AVENTIS-2013SA065480

PATIENT
  Age: 61 Year
  Sex: Female

DRUGS (4)
  1. LANTUS SOLOSTAR [Suspect]
     Dosage: DOSE:10 UNIT(S)
     Route: 051
     Dates: start: 20130621
  2. SOLOSTAR [Suspect]
     Dates: start: 20130621
  3. JANUVIA [Suspect]
  4. METFORMIN [Concomitant]

REACTIONS (2)
  - Blood glucose increased [Unknown]
  - Incorrect product storage [Unknown]
